FAERS Safety Report 9101121 (Version 2)
Quarter: 2017Q4

REPORT INFORMATION
  Report Type: Spontaneous
  Country: CO (occurrence: CO)
  Receive Date: 20130218
  Receipt Date: 20171013
  Transmission Date: 20180321
  Serious: Yes (Life-Threatening, Hospitalization)
  Sender: FDA-Public Use
  Company Number: CO-ASTRAZENECA-2013SE10259

PATIENT
  Age: 56 Year
  Sex: Female
  Weight: 91.8 kg

DRUGS (49)
  1. CELECOXIB/IBUPROFEN-NAPROXEN/PLACEBO CODE NOT BROKEN [Suspect]
     Active Substance: CELECOXIB\IBUPROFEN\NAPROXEN\PLACEBO
     Indication: RHEUMATOID ARTHRITIS
     Dosage: THREE TIMES A DAY
     Route: 048
     Dates: start: 20090415, end: 20100916
  2. FUROSEMIDE. [Concomitant]
     Active Substance: FUROSEMIDE
     Indication: HYPERTENSION
     Dosage: 20 MG AND 40 MG EVERY 8 HOURS ONCE/SINGLE ADMINISTRATION
     Route: 042
     Dates: end: 20100927
  3. FUROSEMIDE. [Concomitant]
     Active Substance: FUROSEMIDE
     Indication: HYPERTENSION
     Dosage: 40.0MG ONCE/SINGLE ADMINISTRATION
     Route: 042
     Dates: start: 20101003, end: 20101003
  4. LOSARTAN. [Concomitant]
     Active Substance: LOSARTAN
     Indication: HYPERTENSION
     Dates: start: 20101009, end: 20101012
  5. CELECOXIB/IBUPROFEN-NAPROXEN/PLACEBO CODE NOT BROKEN [Suspect]
     Active Substance: CELECOXIB\IBUPROFEN\NAPROXEN\PLACEBO
     Indication: OSTEOARTHRITIS
     Dosage: THREE TIMES A DAY
     Route: 048
     Dates: start: 20090415, end: 20100916
  6. PREDNISOLON [Suspect]
     Active Substance: PREDNISOLONE
     Indication: ARTHRALGIA
     Route: 065
     Dates: start: 20060101, end: 20090820
  7. PREDNISOLON [Suspect]
     Active Substance: PREDNISOLONE
     Indication: ARTHRALGIA
     Route: 065
     Dates: start: 20101014, end: 20101014
  8. FUROSEMIDE. [Concomitant]
     Active Substance: FUROSEMIDE
     Indication: HYPERTENSION
     Dosage: 40.0MG ONCE/SINGLE ADMINISTRATION
     Route: 042
     Dates: start: 20100929, end: 20101002
  9. FUROSEMIDE. [Concomitant]
     Active Substance: FUROSEMIDE
     Indication: HYPERTENSION
     Dosage: 20.0MG ONCE/SINGLE ADMINISTRATION
     Route: 042
     Dates: start: 20101009, end: 20101010
  10. LOSARTAN. [Concomitant]
     Active Substance: LOSARTAN
     Indication: HYPERTENSION
     Dates: start: 20101206
  11. MEROPENEM. [Suspect]
     Active Substance: MEROPENEM
     Indication: PNEUMONIA
     Route: 042
     Dates: start: 20100924, end: 20100929
  12. VANCOMYCIN [Suspect]
     Active Substance: VANCOMYCIN
     Indication: KLEBSIELLA INFECTION
     Route: 042
     Dates: start: 20101018, end: 20101025
  13. PREDNISOLON [Suspect]
     Active Substance: PREDNISOLONE
     Indication: RHEUMATOID ARTHRITIS
     Route: 065
     Dates: start: 20090826, end: 20100915
  14. METOCLOPRAMIDE. [Concomitant]
     Active Substance: METOCLOPRAMIDE
     Route: 042
     Dates: start: 20101010, end: 20101104
  15. ACETYLSALICYLIC ACID [Concomitant]
     Active Substance: ASPIRIN
  16. FUROSEMIDE. [Concomitant]
     Active Substance: FUROSEMIDE
     Indication: HYPERTENSION
     Dates: start: 201006
  17. FUROSEMIDE. [Concomitant]
     Active Substance: FUROSEMIDE
     Indication: HYPERTENSION
     Route: 042
     Dates: start: 20100922, end: 20100923
  18. FUROSEMIDE. [Concomitant]
     Active Substance: FUROSEMIDE
     Indication: HYPERTENSION
     Dosage: 20.0MG ONCE/SINGLE ADMINISTRATION
     Route: 042
     Dates: start: 20100925, end: 20100925
  19. CELECOXIB/IBUPROFEN-NAPROXEN/PLACEBO CODE NOT BROKEN [Suspect]
     Active Substance: CELECOXIB\IBUPROFEN\NAPROXEN\PLACEBO
     Indication: OSTEOARTHRITIS
     Dosage: THREE TIMES A DAY
     Route: 048
     Dates: start: 20110125
  20. FUROSEMIDE. [Concomitant]
     Active Substance: FUROSEMIDE
     Indication: HYPERTENSION
     Dosage: TWO DOSES OF 20 MG AND 1 DOSE OG 60 MG
     Route: 042
     Dates: start: 20100916, end: 20100916
  21. FUROSEMIDE. [Concomitant]
     Active Substance: FUROSEMIDE
     Indication: HYPERTENSION
     Route: 042
     Dates: start: 20100921, end: 20100922
  22. FUROSEMIDE. [Concomitant]
     Active Substance: FUROSEMIDE
     Indication: HYPERTENSION
     Dosage: 20.0MG ONCE/SINGLE ADMINISTRATION
     Route: 042
     Dates: start: 20100924, end: 20100924
  23. FUROSEMIDE. [Concomitant]
     Active Substance: FUROSEMIDE
     Indication: HYPERTENSION
     Dosage: 20.0MG ONCE/SINGLE ADMINISTRATION
     Route: 042
     Dates: start: 20101022
  24. FUROSEMIDE. [Concomitant]
     Active Substance: FUROSEMIDE
     Indication: HYPERTENSION
     Dosage: 20.0MG ONCE/SINGLE ADMINISTRATION
     Route: 042
     Dates: start: 20101004, end: 20101005
  25. MEROPENEM. [Suspect]
     Active Substance: MEROPENEM
     Indication: PNEUMONIA
     Route: 042
     Dates: start: 20121014, end: 20121020
  26. PREDNISOLON [Suspect]
     Active Substance: PREDNISOLONE
     Indication: RHEUMATOID ARTHRITIS
     Route: 065
     Dates: start: 20060101, end: 20090820
  27. PREDNISOLON [Suspect]
     Active Substance: PREDNISOLONE
     Indication: RHEUMATOID ARTHRITIS
     Route: 065
     Dates: start: 20090821, end: 20090825
  28. PREDNISOLON [Suspect]
     Active Substance: PREDNISOLONE
     Indication: RHEUMATOID ARTHRITIS
     Route: 065
     Dates: start: 20100916, end: 20100916
  29. NEXIUM [Concomitant]
     Active Substance: ESOMEPRAZOLE MAGNESIUM
     Route: 048
     Dates: start: 20110125
  30. AMITRIPTYLINE [Concomitant]
     Active Substance: AMITRIPTYLINE
  31. CELECOXIB/IBUPROFEN-NAPROXEN/PLACEBO CODE NOT BROKEN [Suspect]
     Active Substance: CELECOXIB\IBUPROFEN\NAPROXEN\PLACEBO
     Indication: RHEUMATOID ARTHRITIS
     Dosage: THREE TIMES A DAY
     Route: 048
     Dates: start: 20110125
  32. PREDNISOLON [Suspect]
     Active Substance: PREDNISOLONE
     Indication: ARTHRALGIA
     Route: 065
     Dates: start: 20090826, end: 20100915
  33. PREDNISOLON [Suspect]
     Active Substance: PREDNISOLONE
     Indication: ARTHRALGIA
     Route: 065
     Dates: start: 20100916, end: 20100916
  34. PREDNISOLON [Suspect]
     Active Substance: PREDNISOLONE
     Indication: RHEUMATOID ARTHRITIS
     Route: 065
     Dates: start: 20101014, end: 20101014
  35. PREDNISOLON [Suspect]
     Active Substance: PREDNISOLONE
     Indication: RHEUMATOID ARTHRITIS
     Route: 065
     Dates: start: 20101015, end: 20101019
  36. PREDNISOLON [Suspect]
     Active Substance: PREDNISOLONE
     Indication: ARTHRALGIA
     Route: 065
     Dates: start: 20101015, end: 20101019
  37. PREDNISOLON [Suspect]
     Active Substance: PREDNISOLONE
     Indication: ARTHRALGIA
     Route: 065
     Dates: start: 20101206
  38. NEXIUM [Concomitant]
     Active Substance: ESOMEPRAZOLE MAGNESIUM
     Route: 048
     Dates: start: 20090414, end: 20100916
  39. FUROSEMIDE. [Concomitant]
     Active Substance: FUROSEMIDE
     Indication: HYPERTENSION
     Dosage: 10.0MG ONCE/SINGLE ADMINISTRATION
     Route: 042
     Dates: start: 20101006, end: 20101007
  40. CLONIDINE. [Concomitant]
     Active Substance: CLONIDINE
     Route: 042
     Dates: start: 20101014, end: 20101021
  41. LOSARTAN. [Concomitant]
     Active Substance: LOSARTAN
     Indication: HYPERTENSION
     Dates: start: 20101002, end: 20101003
  42. PREDNISOLON [Suspect]
     Active Substance: PREDNISOLONE
     Indication: ARTHRALGIA
     Route: 065
     Dates: start: 20090821, end: 20090825
  43. PREDNISOLON [Suspect]
     Active Substance: PREDNISOLONE
     Indication: RHEUMATOID ARTHRITIS
     Route: 065
     Dates: start: 20101206
  44. LOVASTATIN. [Concomitant]
     Active Substance: LOVASTATIN
     Dates: start: 20090806
  45. FUROSEMIDE. [Concomitant]
     Active Substance: FUROSEMIDE
     Indication: HYPERTENSION
     Route: 042
     Dates: start: 20100918, end: 20100918
  46. FUROSEMIDE. [Concomitant]
     Active Substance: FUROSEMIDE
     Indication: HYPERTENSION
     Dosage: 40.0MG ONCE/SINGLE ADMINISTRATION
     Route: 042
     Dates: start: 20100925, end: 20100927
  47. FUROSEMIDE. [Concomitant]
     Active Substance: FUROSEMIDE
     Indication: HYPERTENSION
     Dosage: 40.0MG ONCE/SINGLE ADMINISTRATION
     Route: 042
     Dates: start: 20101020, end: 20101020
  48. LOSARTAN. [Concomitant]
     Active Substance: LOSARTAN
     Indication: HYPERTENSION
     Dates: start: 200906, end: 20100916
  49. METOPROLOL. [Concomitant]
     Active Substance: METOPROLOL

REACTIONS (13)
  - Myopathy [Recovered/Resolved]
  - Bacteraemia [Recovered/Resolved]
  - Polyneuropathy [Recovered/Resolved]
  - Phlebitis [Recovered/Resolved]
  - Septic shock [Recovered/Resolved]
  - Thrombophlebitis septic [Recovered/Resolved]
  - Klebsiella infection [Recovered/Resolved]
  - Anaemia [Recovered/Resolved]
  - Respiratory failure [Recovered/Resolved]
  - Renal failure [Recovered/Resolved]
  - Pneumonia bacterial [Recovered/Resolved]
  - Multiple organ dysfunction syndrome [Unknown]
  - Pneumonia [Recovered/Resolved]

NARRATIVE: CASE EVENT DATE: 201009
